FAERS Safety Report 5834135-3 (Version None)
Quarter: 2008Q3

REPORT INFORMATION
  Report Type: 
  Country: None (occurrence: None)
  Receive Date: 20080801
  Receipt Date: 20070309
  Transmission Date: 20090109
  Serious: Yes (Life-Threatening, Hospitalization)
  Sender: FDA-Public Use
  Company Number: US213002

PATIENT
  Age: 50 Year
  Sex: Male

DRUGS (12)
  1. PANITUMUMAB (PANITUMUMAB) [Suspect]
     Dosage: 1.8 MG/KG, 1 IN 1 WEEKS, IV
     Route: 042
     Dates: start: 20061220, end: 20070131
  2. CARBOPLATIN [Suspect]
  3. PACLITAXEL [Suspect]
  4. LORAZEPAM [Concomitant]
  5. PROCHLORPERAZINE EDISYLATE [Concomitant]
  6. SENNA (SENNA) [Concomitant]
  7. LIDOCAINE [Concomitant]
  8. ALUMINUM HYDROXIDE AND MAGNESIUM TRISILICATE [Concomitant]
  9. DIPHENHYDRAMINE HYDROCHLORIDE [Concomitant]
  10. OXYCODONE HCL [Concomitant]
  11. FENTANYL [Concomitant]
  12. BACITRACIN [Concomitant]

REACTIONS (16)
  - ASPIRATION [None]
  - ATRIAL SEPTAL DEFECT [None]
  - BRAIN OEDEMA [None]
  - CARDIAC ARREST [None]
  - CARDIAC FAILURE CONGESTIVE [None]
  - CEREBRAL HAEMATOMA [None]
  - DEEP VEIN THROMBOSIS [None]
  - EMBOLIC STROKE [None]
  - HEPATIC FUNCTION ABNORMAL [None]
  - LUNG DISORDER [None]
  - MULTI-ORGAN FAILURE [None]
  - PROCEDURAL COMPLICATION [None]
  - RENAL IMPAIRMENT [None]
  - UNRESPONSIVE TO STIMULI [None]
  - VENTRICULAR HYPOKINESIA [None]
  - VOMITING [None]
